FAERS Safety Report 6046747-5 (Version None)
Quarter: 2009Q1

REPORT INFORMATION
  Report Type: 
  Country: None (occurrence: None)
  Receive Date: 20090122
  Receipt Date: 20090115
  Transmission Date: 20090719
  Serious: Yes (Hospitalization)
  Sender: FDA-Public Use
  Company Number: FR-ABBOTT-09P-056-0498024-00

PATIENT
  Sex: Female

DRUGS (4)
  1. KALETRA [Suspect]
     Indication: HIV INFECTION
     Route: 048
     Dates: start: 20090101, end: 20090101
  2. KALETRA [Suspect]
  3. LAMIVUDINE [Suspect]
     Indication: HIV INFECTION
  4. DIDANOSINE [Suspect]
     Indication: HIV INFECTION

REACTIONS (3)
  - CYTOLYTIC HEPATITIS [None]
  - GENERAL PHYSICAL CONDITION ABNORMAL [None]
  - GLUCOSE-6-PHOSPHATE DEHYDROGENASE DEFICIENCY [None]
